FAERS Safety Report 25727084 (Version 1)
Quarter: 2025Q3

REPORT INFORMATION
  Report Type: Spontaneous
  Country: US (occurrence: US)
  Receive Date: 20250826
  Receipt Date: 20250826
  Transmission Date: 20251020
  Serious: No
  Sender: TAKEDA
  Company Number: US-TAKEDA-2025TUS074494

PATIENT
  Sex: Female

DRUGS (3)
  1. EOHILIA [Suspect]
     Active Substance: BUDESONIDE
     Indication: Eosinophilic oesophagitis
     Dosage: UNK, BID
     Dates: start: 202401, end: 202404
  2. EOHILIA [Suspect]
     Active Substance: BUDESONIDE
     Dosage: UNK, QD
  3. EOHILIA [Suspect]
     Active Substance: BUDESONIDE
     Dosage: UNK, BID

REACTIONS (2)
  - Flushing [Recovered/Resolved]
  - Inappropriate schedule of product administration [Unknown]
